FAERS Safety Report 10336220 (Version 4)
Quarter: 2014Q4

REPORT INFORMATION
  Report Type: Report from Study
  Country: CA (occurrence: CA)
  Receive Date: 20140723
  Receipt Date: 20141028
  Transmission Date: 20150528
  Serious: Yes (Hospitalization, Other)
  Sender: FDA-Public Use
  Company Number: CA-BRISTOL-MYERS SQUIBB COMPANY-21213897

PATIENT
  Age: 72 Year
  Sex: Female

DRUGS (12)
  1. IRON [Concomitant]
     Active Substance: IRON
  2. METHOTREXATE [Concomitant]
     Active Substance: METHOTREXATE
  3. PLAVIX [Concomitant]
     Active Substance: CLOPIDOGREL BISULFATE
  4. AMLODIPINE [Concomitant]
     Active Substance: AMLODIPINE BESYLATE
  5. NEXIUM [Concomitant]
     Active Substance: ESOMEPRAZOLE MAGNESIUM
  6. DOMPERIDONE [Concomitant]
     Active Substance: DOMPERIDONE
  7. ORENCIA [Suspect]
     Active Substance: ABATACEPT
     Indication: RHEUMATOID ARTHRITIS
     Dosage: ONGOING?INT ON SEP 2014?BATCH.NO4C89733-EXP:AUG16?LAST DOSE 11AUG14.
     Route: 042
     Dates: start: 20120112
  8. ATIVAN [Concomitant]
     Active Substance: LORAZEPAM
  9. ATACAND [Concomitant]
     Active Substance: CANDESARTAN CILEXETIL
  10. CALCIUM [Concomitant]
     Active Substance: CALCIUM
  11. PREDNISONE. [Concomitant]
     Active Substance: PREDNISONE
  12. MIRAPEX [Concomitant]
     Active Substance: PRAMIPEXOLE DIHYDROCHLORIDE

REACTIONS (6)
  - Muscle tightness [Recovered/Resolved]
  - Immune system disorder [Unknown]
  - Chest discomfort [Recovered/Resolved]
  - Tachycardia [Recovering/Resolving]
  - Cardiac valve disease [Not Recovered/Not Resolved]
  - Dyspnoea [Recovered/Resolved]

NARRATIVE: CASE EVENT DATE: 2014
